FAERS Safety Report 7083537-9 (Version None)
Quarter: 2010Q4

REPORT INFORMATION
  Report Type: 
  Country: None (occurrence: None)
  Receive Date: 20101104
  Receipt Date: 20101027
  Transmission Date: 20110411
  Serious: Yes (Other)
  Sender: FDA-Public Use
  Company Number: JP-ROCHE-723155

PATIENT
  Sex: Male
  Weight: 26 kg

DRUGS (2)
  1. TAMIFLU [Suspect]
     Indication: INFLUENZA
     Dosage: DRUG:TAMIFLU DRY SYRUP 3%
     Route: 048
     Dates: start: 20091004, end: 20091004
  2. TULOBUTEROL [Concomitant]
     Dosage: FORM: TAPE
     Route: 003
     Dates: start: 20091004

REACTIONS (1)
  - ENCEPHALOPATHY [None]
